FAERS Safety Report 11517620 (Version 1)
Quarter: 2015Q3

REPORT INFORMATION
  Report Type: Spontaneous
  Country: US (occurrence: US)
  Receive Date: 20150917
  Receipt Date: 20150917
  Transmission Date: 20151125
  Serious: No
  Sender: FDA-Public Use
  Company Number: US-CELGENEUS-USA-2015082894

PATIENT
  Sex: Female
  Weight: 82.63 kg

DRUGS (1)
  1. OTEZLA [Suspect]
     Active Substance: APREMILAST
     Indication: PSORIATIC ARTHROPATHY
     Dosage: 60 MILLIGRAM
     Route: 048
     Dates: start: 20150721

REACTIONS (7)
  - Insomnia [Recovered/Resolved]
  - Cough [Unknown]
  - Headache [Recovered/Resolved]
  - Diarrhoea [Unknown]
  - Drug ineffective [Unknown]
  - Energy increased [Unknown]
  - Nausea [Recovered/Resolved]

NARRATIVE: CASE EVENT DATE: 2015
